FAERS Safety Report 12689408 (Version 1)
Quarter: 2016Q3

REPORT INFORMATION
  Report Type: Spontaneous
  Country: US (occurrence: None)
  Receive Date: 20160825
  Receipt Date: 20160825
  Transmission Date: 20161109
  Serious: No
  Sender: FDA-Public Use
  Company Number: None

PATIENT
  Age: 77 Year
  Sex: Female
  Weight: 90.72 kg

DRUGS (9)
  1. MAGNESIUM CITRATE. [Concomitant]
     Active Substance: MAGNESIUM CITRATE
  2. NEVANA BLUE [Concomitant]
  3. LOW DOSE ASPIRIN [Concomitant]
     Active Substance: ASPIRIN
  4. CRANBERRY. [Concomitant]
     Active Substance: CRANBERRY
  5. CALCIUM 500 + D [Concomitant]
     Active Substance: CALCIUM\VITAMIN D
  6. CIPROFLOXACIN TAB 50 [Suspect]
     Active Substance: CIPROFLOXACIN
  7. LEVOFLOXACIN TAB 750 [Suspect]
     Active Substance: LEVOFLOXACIN
     Indication: URINARY TRACT INFECTION
     Dosage: FOR 7DA 1 ONCE A DA MOUTH
     Route: 048
  8. FISH OIL [Concomitant]
     Active Substance: FISH OIL
  9. VITAMIN D3 [Concomitant]
     Active Substance: CHOLECALCIFEROL

REACTIONS (4)
  - Balance disorder [None]
  - Limb discomfort [None]
  - Gait disturbance [None]
  - Neuropathy peripheral [None]

NARRATIVE: CASE EVENT DATE: 201407
